FAERS Safety Report 11820155 (Version 9)
Quarter: 2019Q4

REPORT INFORMATION
  Report Type: Report from Study
  Country: US (occurrence: US)
  Receive Date: 20151210
  Receipt Date: 20191121
  Transmission Date: 20200122
  Serious: No
  Sender: FDA-Public Use
  Company Number: PHEH2014US013767

PATIENT
  Age: 30 Year
  Sex: Male

DRUGS (3)
  1. GILENYA [Suspect]
     Active Substance: FINGOLIMOD HYDROCHLORIDE
     Indication: PRODUCT USED FOR UNKNOWN INDICATION
     Dosage: UNK
     Route: 065
  2. OXYCODONE [Concomitant]
     Active Substance: OXYCODONE
     Indication: PRODUCT USED FOR UNKNOWN INDICATION
     Route: 065
  3. PREDNISONE. [Concomitant]
     Active Substance: PREDNISONE
     Indication: PRODUCT USED FOR UNKNOWN INDICATION
     Route: 065

REACTIONS (13)
  - Prescribed underdose [Unknown]
  - Lymphocyte count decreased [Unknown]
  - Urinary hesitation [Recovered/Resolved]
  - Back pain [Not Recovered/Not Resolved]
  - Sexual dysfunction [Not Recovered/Not Resolved]
  - Dizziness [Unknown]
  - White blood cell count decreased [Unknown]
  - Headache [Recovered/Resolved]
  - Non-cardiac chest pain [Recovered/Resolved]
  - Constipation [Recovered/Resolved]
  - Dysphagia [Recovered/Resolved]
  - Pain [Unknown]
  - Dehydration [Unknown]

NARRATIVE: CASE EVENT DATE: 20140708
